FAERS Safety Report 6877072-8 (Version None)
Quarter: 2010Q3

REPORT INFORMATION
  Report Type: 
  Country: None (occurrence: None)
  Receive Date: 20100727
  Receipt Date: 20100727
  Transmission Date: 20110219
  Serious: Yes (Life-Threatening)
  Sender: FDA-Public Use
  Company Number: None

PATIENT
  Sex: Male
  Weight: 69.85 kg

DRUGS (1)
  1. CEFAZOLIN [Suspect]
     Indication: ANTIBIOTIC PROPHYLAXIS
     Dosage: 2 GRAM Q 8 HOURS X 2 DOSE IV
     Route: 042
     Dates: start: 20100723, end: 20100724

REACTIONS (2)
  - CLOSTRIDIUM TEST POSITIVE [None]
  - DIARRHOEA [None]
